FAERS Safety Report 22997995 (Version 11)
Quarter: 2024Q4

REPORT INFORMATION
  Report Type: Spontaneous
  Country: DE (occurrence: DE)
  Receive Date: 20230928
  Receipt Date: 20241227
  Transmission Date: 20250115
  Serious: Yes (Hospitalization, Other)
  Sender: GALDERMA
  Company Number: DE-ALCEDIS-CEMIAE852

PATIENT

DRUGS (16)
  1. CLOBETASOL PROPIONATE [Suspect]
     Active Substance: CLOBETASOL PROPIONATE
     Indication: Product used for unknown indication
     Dosage: 1 DOSAGE FORM
     Route: 065
     Dates: start: 202307, end: 202309
  2. UREA [Suspect]
     Active Substance: UREA
     Indication: Product used for unknown indication
     Dosage: 1 DOSAGE FORM
     Route: 065
     Dates: start: 20230519
  3. UREA [Suspect]
     Active Substance: UREA
     Dosage: 1 DOSAGE FORM
     Route: 065
     Dates: start: 202305, end: 202309
  4. PANTOPRAZOLE SODIUM [Concomitant]
     Active Substance: PANTOPRAZOLE SODIUM
     Indication: Product used for unknown indication
     Dosage: UNK
     Route: 065
     Dates: start: 2022
  5. IBUPROFEN [Concomitant]
     Active Substance: IBUPROFEN
     Indication: Product used for unknown indication
     Dosage: 350 MILLIGRAM, Q3WK
     Route: 065
     Dates: start: 20221014
  6. IBUPROFEN [Concomitant]
     Active Substance: IBUPROFEN
     Dosage: 1 DOSAGE FORM
     Route: 065
     Dates: start: 20230519, end: 202309
  7. IBUPROFEN [Concomitant]
     Active Substance: IBUPROFEN
     Dosage: 350 MILLIGRAM
     Route: 065
     Dates: start: 202307, end: 202309
  8. IBUPROFEN [Concomitant]
     Active Substance: IBUPROFEN
     Dosage: UNK
     Route: 065
     Dates: start: 202305, end: 202309
  9. DESLORATADINE [Concomitant]
     Active Substance: DESLORATADINE
     Indication: Product used for unknown indication
     Dosage: 1 DOSAGE FORM
     Route: 065
     Dates: start: 202305, end: 202309
  10. CEMIPLIMAB [Concomitant]
     Active Substance: CEMIPLIMAB
     Indication: Squamous cell carcinoma of skin
     Dosage: 350 MG, Q3W, PER THREE WEEKS
     Route: 042
     Dates: start: 20221014
  11. CLEMASTINE FUMARATE [Concomitant]
     Active Substance: CLEMASTINE FUMARATE
     Indication: Product used for unknown indication
     Dosage: 1 DOSAGE FORM
     Route: 065
     Dates: start: 202305, end: 202309
  12. ZOLPIDEM TARTRATE [Concomitant]
     Active Substance: ZOLPIDEM TARTRATE
     Indication: Product used for unknown indication
     Dosage: 1 DOSAGE FORM
     Route: 065
     Dates: start: 2022
  13. IBUPROFEN [Concomitant]
     Active Substance: IBUPROFEN
     Indication: Product used for unknown indication
     Dosage: UNK
     Route: 065
     Dates: start: 2022
  14. POLIDOCANOL\UREA [Concomitant]
     Active Substance: POLIDOCANOL\UREA
     Indication: Product used for unknown indication
     Dosage: UNK
     Route: 065
     Dates: start: 20230519
  15. CALCIUM STEARATE [Concomitant]
     Active Substance: CALCIUM STEARATE
     Indication: Product used for unknown indication
     Dosage: UNK
     Route: 065
     Dates: start: 2022
  16. OPIPRAMOL [Concomitant]
     Active Substance: OPIPRAMOL
     Indication: Product used for unknown indication
     Dosage: UNK
     Route: 065
     Dates: start: 2022

REACTIONS (2)
  - Dermatitis bullous [Recovered/Resolved]
  - Pemphigoid [Recovered/Resolved]

NARRATIVE: CASE EVENT DATE: 20230830
